APPROVED DRUG PRODUCT: TELMISARTAN
Active Ingredient: TELMISARTAN
Strength: 80MG
Dosage Form/Route: TABLET;ORAL
Application: A207882 | Product #003 | TE Code: AB
Applicant: PRINSTON PHARMACEUTICAL INC
Approved: May 3, 2017 | RLD: No | RS: No | Type: RX